FAERS Safety Report 9227590 (Version 1)
Quarter: 2013Q2

REPORT INFORMATION
  Report Type: Spontaneous
  Country: BR (occurrence: BR)
  Receive Date: 20130412
  Receipt Date: 20130412
  Transmission Date: 20140414
  Serious: Yes (Other)
  Sender: FDA-Public Use
  Company Number: PHHY2013BR012639

PATIENT
  Sex: Male
  Weight: 34 kg

DRUGS (5)
  1. EXJADE [Suspect]
     Indication: SICKLE CELL ANAEMIA
     Dosage: 1 DF,  DAILY
     Route: 048
     Dates: start: 20120918, end: 20120930
  2. EXJADE [Suspect]
     Dosage: 1 DF, DAILY
     Route: 048
     Dates: start: 201210
  3. EXJADE [Suspect]
     Dosage: 1 DF, DAILY
     Route: 048
     Dates: start: 201211, end: 201212
  4. FOLIC ACID [Concomitant]
  5. PARACETAMOL [Concomitant]
     Indication: PAIN

REACTIONS (9)
  - Haemorrhage [Unknown]
  - Sickle cell anaemia with crisis [Recovered/Resolved]
  - Haemoglobin decreased [Recovered/Resolved]
  - Chromaturia [Recovered/Resolved]
  - Pain in extremity [Recovered/Resolved]
  - Dyspnoea [Unknown]
  - Bone pain [Unknown]
  - Serum ferritin increased [Recovered/Resolved]
  - Diarrhoea [Recovered/Resolved]
